FAERS Safety Report 6196384-7 (Version None)
Quarter: 2009Q2

REPORT INFORMATION
  Report Type: 
  Country: None (occurrence: None)
  Receive Date: 20090518
  Receipt Date: 20090518
  Transmission Date: 20091009
  Serious: No
  Sender: FDA-Public Use
  Company Number: None

PATIENT
  Sex: Female
  Weight: 51 kg

DRUGS (1)
  1. NOLVADEX [Suspect]
     Dosage: 20 MG
     Dates: end: 20071128

REACTIONS (1)
  - MALIGNANT MELANOMA [None]
